FAERS Safety Report 25362489 (Version 1)
Quarter: 2025Q2

REPORT INFORMATION
  Report Type: Spontaneous
  Country: US (occurrence: None)
  Receive Date: 20250523
  Receipt Date: 20250523
  Transmission Date: 20250717
  Serious: Yes (Other)
  Sender: FDA-CTU
  Company Number: None

PATIENT
  Age: 73 Year
  Sex: Female

DRUGS (1)
  1. STIVARGA [Suspect]
     Active Substance: REGORAFENIB MONOHYDRATE
     Dates: start: 20250429, end: 20250523

REACTIONS (9)
  - Nausea [None]
  - Diarrhoea [None]
  - Asthenia [None]
  - Dry mouth [None]
  - Lip dry [None]
  - Dry throat [None]
  - Abdominal pain upper [None]
  - Pain in extremity [None]
  - Bone pain [None]

NARRATIVE: CASE EVENT DATE: 20250523
